FAERS Safety Report 5623299-2 (Version None)
Quarter: 2008Q1

REPORT INFORMATION
  Report Type: 
  Country: None (occurrence: None)
  Receive Date: 20080212
  Receipt Date: 20080205
  Transmission Date: 20080703
  Serious: Yes (Other)
  Sender: FDA-Public Use
  Company Number: US-ALLERGAN-0801452US

PATIENT
  Age: 51 Year
  Sex: Male

DRUGS (1)
  1. FLUOROMETHOLONE [Suspect]
     Indication: EPISCLERITIS
     Dosage: 1 GTT, QID
     Route: 047

REACTIONS (4)
  - CONJUNCTIVAL HYPERAEMIA [None]
  - EYE PAIN [None]
  - PHOTOPHOBIA [None]
  - SCLERAL DISORDER [None]
